FAERS Safety Report 9110247 (Version 12)
Quarter: 2013Q4

REPORT INFORMATION
  Report Type: Spontaneous
  Country: BE (occurrence: BE)
  Receive Date: 20130121
  Receipt Date: 20131001
  Transmission Date: 20140711
  Serious: Yes (Hospitalization, Other)
  Sender: FDA-Public Use
  Company Number: BE-VERTEX PHARMACEUTICALS INC.-2012-023977

PATIENT
  Age: 57 Year
  Sex: Female

DRUGS (9)
  1. INCIVO [Suspect]
     Indication: HEPATITIS C
     Dosage: 2400 MG, UNK
     Route: 065
     Dates: start: 20120921, end: 20121225
  2. COPEGUS [Suspect]
     Indication: HEPATITIS C
     Dosage: 1000 MG, UNK
     Route: 065
     Dates: start: 20120921, end: 20130903
  3. PEGASYS [Suspect]
     Indication: HEPATITIS C
     Dosage: 180 ?G, UNK
     Route: 065
     Dates: start: 20120921, end: 20130828
  4. AERIUS [Concomitant]
     Indication: PRODUCT USED FOR UNKNOWN INDICATION
     Dosage: UNK, QD
  5. ATARAX [Concomitant]
     Indication: PRODUCT USED FOR UNKNOWN INDICATION
     Dosage: 25 MG, UNK
     Route: 065
  6. PRIMPERAN [Concomitant]
     Indication: ABDOMINAL PAIN UPPER
     Dosage: UNK
     Route: 065
  7. LITICAN [Concomitant]
     Indication: ABDOMINAL PAIN UPPER
     Dosage: UNK
     Route: 065
  8. MOTILIUM [Concomitant]
     Indication: ABDOMINAL PAIN UPPER
     Dosage: UNK
     Route: 065
  9. ZOFRAN [Concomitant]
     Indication: ABDOMINAL PAIN UPPER
     Dosage: UNK
     Route: 065
     Dates: start: 20130924

REACTIONS (28)
  - Rheumatic disorder [Not Recovered/Not Resolved]
  - Urticaria [Unknown]
  - Thrombocytopenia [Unknown]
  - Anaemia [Unknown]
  - Pruritus [Not Recovered/Not Resolved]
  - Rash [Recovered/Resolved]
  - Fluid retention [Unknown]
  - Ear pain [Unknown]
  - Blood pressure decreased [Unknown]
  - Aphthous stomatitis [Not Recovered/Not Resolved]
  - Poor quality sleep [Not Recovered/Not Resolved]
  - Constipation [Unknown]
  - Folliculitis [Unknown]
  - Dry mouth [Unknown]
  - Dyspnoea [Unknown]
  - Abdominal distension [Unknown]
  - Aphthous stomatitis [Not Recovered/Not Resolved]
  - Stomatitis [Recovered/Resolved]
  - Hyperhidrosis [Not Recovered/Not Resolved]
  - Myalgia [Not Recovered/Not Resolved]
  - Abdominal pain upper [Not Recovered/Not Resolved]
  - Chills [Not Recovered/Not Resolved]
  - Fatigue [Unknown]
  - Asthenia [Not Recovered/Not Resolved]
  - Haemorrhoids [Not Recovered/Not Resolved]
  - Anal pruritus [Not Recovered/Not Resolved]
  - Diarrhoea [Not Recovered/Not Resolved]
  - Nausea [Not Recovered/Not Resolved]
